FAERS Safety Report 6831150-8 (Version None)
Quarter: 2010Q3

REPORT INFORMATION
  Report Type: 
  Country: None (occurrence: None)
  Receive Date: 20100707
  Receipt Date: 20100701
  Transmission Date: 20110219
  Serious: Yes (Other)
  Sender: FDA-Public Use
  Company Number: 1000013450

PATIENT
  Age: 58 Year
  Sex: Female

DRUGS (2)
  1. LEXAPRO [Suspect]
     Indication: GENERALISED ANXIETY DISORDER
     Dosage: 10 MG (10 MG, 1 IN 1 D), ORAL
     Route: 048
     Dates: start: 20100301, end: 20100323
  2. CLONAZEPAM [Concomitant]

REACTIONS (4)
  - ANXIETY DISORDER [None]
  - FALL [None]
  - GRAND MAL CONVULSION [None]
  - REFUSAL OF TREATMENT BY PATIENT [None]
